FAERS Safety Report 8934918 (Version 2)
Quarter: 2012Q4

REPORT INFORMATION
  Report Type: 
  Country: US (occurrence: US)
  Receive Date: 20121129
  Receipt Date: 20121221
  Transmission Date: 20130627
  Serious: Yes (Death, Hospitalization, Other)
  Sender: FDA-Public Use
  Company Number: US-ACTELION-A-US2012-71215

PATIENT
  Age: 67 Year
  Sex: Male

DRUGS (4)
  1. TRACLEER [Suspect]
     Indication: PULMONARY ARTERIAL HYPERTENSION
     Dosage: UNK
     Route: 048
  2. SILDENAFIL [Concomitant]
  3. REMODULIN [Concomitant]
  4. ASPIRIN [Concomitant]

REACTIONS (9)
  - Death [Fatal]
  - Endotracheal intubation [Unknown]
  - Abdominal distension [Unknown]
  - Weight increased [Unknown]
  - Fluid retention [Unknown]
  - Oedema [Unknown]
  - Infusion site erythema [None]
  - Infusion site induration [None]
  - Infusion site erythema [None]
